FAERS Safety Report 6230678-1 (Version None)
Quarter: 2009Q2

REPORT INFORMATION
  Report Type: 
  Country: None (occurrence: None)
  Receive Date: 20090616
  Receipt Date: 20090609
  Transmission Date: 20091009
  Serious: Yes (Death, Hospitalization, Other)
  Sender: FDA-Public Use
  Company Number: NO-CELGENEUS-122-C5013-09040575

PATIENT
  Sex: Male
  Weight: 95 kg

DRUGS (5)
  1. CC-5013 [Suspect]
     Indication: MULTIPLE MYELOMA
     Route: 048
     Dates: start: 20090114, end: 20090204
  2. CC-5013 [Suspect]
     Route: 048
     Dates: start: 20090210, end: 20090302
  3. CC-5013 [Suspect]
     Route: 048
     Dates: end: 20090331
  4. DEXAMETHASONE [Suspect]
     Indication: MULTIPLE MYELOMA
     Route: 048
     Dates: start: 20090114, end: 20090131
  5. DEXAMETHASONE [Suspect]
     Route: 048
     Dates: start: 20090210, end: 20090331

REACTIONS (4)
  - ATRIAL FIBRILLATION [None]
  - CARDIAC FAILURE [None]
  - CONFUSIONAL STATE [None]
  - MULTIPLE MYELOMA [None]
